FAERS Safety Report 8867871 (Version 1)
Quarter: 2012Q4

REPORT INFORMATION
  Report Type: 
  Country: US (occurrence: US)
  Receive Date: 20121026
  Receipt Date: 20121026
  Transmission Date: 20130627
  Serious: No
  Sender: FDA-Public Use
  Company Number: US-AMGEN-USASP2012040821

PATIENT
  Sex: Male

DRUGS (1)
  1. ENBREL [Suspect]
     Indication: ANKYLOSING SPONDYLITIS
     Dosage: 25 mg, 2 times/wk
     Route: 058
     Dates: start: 200809

REACTIONS (6)
  - Anxiety [Unknown]
  - Muscle spasms [Unknown]
  - Vision blurred [Unknown]
  - Irritability [Unknown]
  - Disturbance in attention [Unknown]
  - Tremor [Unknown]
